FAERS Safety Report 7417544-0 (Version None)
Quarter: 2011Q2

REPORT INFORMATION
  Report Type: 
  Country: None (occurrence: None)
  Receive Date: 20110415
  Receipt Date: 20110408
  Transmission Date: 20111010
  Serious: Yes (Hospitalization)
  Sender: FDA-Public Use
  Company Number: GB-NOVOPROD-323615

PATIENT
  Sex: Female
  Weight: 65.8 kg

DRUGS (5)
  1. NOVORAPID FLEXPEN [Suspect]
     Indication: TYPE 1 DIABETES MELLITUS
     Dosage: 26 IU, QD
     Route: 058
     Dates: start: 20100316, end: 20100922
  2. NOVORAPID FLEXPEN [Suspect]
     Dosage: 28 IU, QD
     Route: 058
     Dates: start: 20100923
  3. INSULIN DETEMIR FLEXPEN [Suspect]
     Dosage: 30 IU, QD
     Route: 058
     Dates: start: 20100923
  4. INSULATARD FLEXPEN HM(GE) [Suspect]
     Indication: TYPE 1 DIABETES MELLITUS
     Dosage: 24 IU, QD
     Route: 058
     Dates: start: 20100914, end: 20100922
  5. INSULIN DETEMIR FLEXPEN [Suspect]
     Indication: TYPE 1 DIABETES MELLITUS
     Dosage: 30 IU, QD
     Route: 058
     Dates: start: 20100316, end: 20100913

REACTIONS (7)
  - FOOD ALLERGY [None]
  - FOOD POISONING [None]
  - VOMITING [None]
  - DIARRHOEA [None]
  - HYPOGLYCAEMIA [None]
  - DIZZINESS [None]
  - HYPOTENSION [None]
